FAERS Safety Report 7405410-6 (Version None)
Quarter: 2011Q2

REPORT INFORMATION
  Report Type: 
  Country: None (occurrence: None)
  Receive Date: 20110411
  Receipt Date: 20110330
  Transmission Date: 20111010
  Serious: Yes (Hospitalization)
  Sender: FDA-Public Use
  Company Number: CH-JNJFOC-20110403211

PATIENT
  Age: 58 Year
  Sex: Female

DRUGS (2)
  1. PALLADONE [Suspect]
     Indication: PRODUCT USED FOR UNKNOWN INDICATION
     Route: 048
  2. TRAMADOL HCL [Suspect]
     Indication: PAIN
     Route: 048

REACTIONS (6)
  - CONFUSIONAL STATE [None]
  - MEDICATION ERROR [None]
  - ACCIDENTAL OVERDOSE [None]
  - DIZZINESS [None]
  - POTENTIATING DRUG INTERACTION [None]
  - FALL [None]
